FAERS Safety Report 5857543-3 (Version None)
Quarter: 2008Q3

REPORT INFORMATION
  Report Type: 
  Country: None (occurrence: None)
  Receive Date: 20080825
  Receipt Date: 20080825
  Transmission Date: 20090109
  Serious: Yes (Life-Threatening, Other)
  Sender: FDA-Public Use
  Company Number: None

PATIENT
  Age: 63 Year
  Sex: Male
  Weight: 88.4514 kg

DRUGS (2)
  1. SPIRONOLACTONE [Suspect]
     Indication: HEART RATE IRREGULAR
     Dates: start: 20040601, end: 20050601
  2. SPIRONOLACTONE [Suspect]
     Indication: HEART VALVE REPLACEMENT
     Dates: start: 20040601, end: 20050601

REACTIONS (2)
  - BREAST MASS [None]
  - NIPPLE DISORDER [None]
